FAERS Safety Report 8153538-8 (Version None)
Quarter: 2012Q1

REPORT INFORMATION
  Report Type: 
  Country: None (occurrence: None)
  Receive Date: 20120216
  Receipt Date: 20120216
  Transmission Date: 20120608
  Serious: Yes (Hospitalization)
  Sender: FDA-Public Use
  Company Number: None

PATIENT
  Age: 51 Year
  Sex: Female
  Weight: 83 kg

DRUGS (1)
  1. AZITHROMYCIN [Suspect]
     Indication: INFECTION
     Dosage: 250 MG EVERY DAY PO
     Route: 048
     Dates: start: 20100826, end: 20100830

REACTIONS (5)
  - FACE OEDEMA [None]
  - OROPHARYNGEAL PAIN [None]
  - PERIORBITAL OEDEMA [None]
  - HYPERSENSITIVITY [None]
  - ANGIOEDEMA [None]
